FAERS Safety Report 16935199 (Version 1)
Quarter: 2019Q4

REPORT INFORMATION
  Report Type: Spontaneous
  Country: GB (occurrence: GB)
  Receive Date: 20191018
  Receipt Date: 20191018
  Transmission Date: 20200122
  Serious: Yes (Hospitalization)
  Sender: FDA-Public Use
  Company Number: GB-MYLANLABS-2019M1097165

PATIENT
  Age: 71 Year
  Sex: Male

DRUGS (4)
  1. MICONAZOLE. [Concomitant]
     Active Substance: MICONAZOLE
     Dosage: 20MG/G. AFTER MEALS (10ML,QD)
     Dates: start: 20190107
  2. NYSTATIN. [Concomitant]
     Active Substance: NYSTATIN
     Dosage: 100,000UNITS/ML ORAL SUSPENSION TO BE DROPPED INTO THE MOUTH FOUR TIMES A DAY. 28 ML
     Dates: start: 20190104
  3. SERTRALINE [Suspect]
     Active Substance: SERTRALINE HYDROCHLORIDE
     Indication: PRODUCT USED FOR UNKNOWN INDICATION
     Dosage: 100 MILLIGRAM, QD
     Dates: start: 20190124
  4. CHLORAMPHENICOL [Concomitant]
     Active Substance: CHLORAMPHENICOL
     Dosage: IN THE AFFECTED EYE(S)
     Dates: start: 20190117

REACTIONS (1)
  - Upper gastrointestinal haemorrhage [Recovered/Resolved]
